FAERS Safety Report 17359360 (Version 1)
Quarter: 2020Q1

REPORT INFORMATION
  Report Type: Spontaneous
  Country: DE (occurrence: DE)
  Receive Date: 20200203
  Receipt Date: 20200203
  Transmission Date: 20200409
  Serious: Yes (Other)
  Sender: FDA-Public Use
  Company Number: DE-DEXPHARM-20200070

PATIENT
  Age: 82 Year
  Sex: Male

DRUGS (4)
  1. FORTECORTIN [DEXAMETHASONE] [Interacting]
     Active Substance: DEXAMETHASONE
     Indication: SEASONAL ALLERGY
     Dosage: 0.5 DF, QD (DAY 4)
     Route: 048
     Dates: start: 20190627
  2. PANTOPRAZOLE [Suspect]
     Active Substance: PANTOPRAZOLE
     Indication: ABDOMINAL DISCOMFORT
  3. CANDESARTAN                        /01349502/ [Concomitant]
     Active Substance: CANDESARTAN
     Indication: HYPERTENSION
  4. FORTECORTIN [DEXAMETHASONE] [Interacting]
     Active Substance: DEXAMETHASONE
     Indication: SEASONAL ALLERGY
     Dosage: DAY 1 TO 3
     Route: 048
     Dates: start: 20190624, end: 20190626

REACTIONS (4)
  - Paranasal sinus discomfort [Unknown]
  - Drug interaction [Unknown]
  - Hiccups [Recovered/Resolved]
  - Infection [Unknown]

NARRATIVE: CASE EVENT DATE: 2019
